FAERS Safety Report 25128048 (Version 1)
Quarter: 2025Q1

REPORT INFORMATION
  Report Type: Spontaneous
  Country: US (occurrence: US)
  Receive Date: 20250327
  Receipt Date: 20250327
  Transmission Date: 20250409
  Serious: Yes (Hospitalization, Other)
  Sender: TAKEDA
  Company Number: US-TAKEDA-2025TUS029461

PATIENT
  Sex: Female

DRUGS (1)
  1. FRUZAQLA [Suspect]
     Active Substance: FRUQUINTINIB
     Indication: Product used for unknown indication

REACTIONS (5)
  - Stoma prolapse [Unknown]
  - Chest pain [Unknown]
  - Gastrointestinal perforation [Unknown]
  - Feeding disorder [Unknown]
  - Pain [Unknown]
